FAERS Safety Report 4931507-6 (Version None)
Quarter: 2006Q1

REPORT INFORMATION
  Report Type: 
  Country: None (occurrence: None)
  Receive Date: 20060303
  Receipt Date: 20060216
  Transmission Date: 20060701
  Serious: Yes (Life-Threatening, Hospitalization)
  Sender: FDA-Public Use
  Company Number: US-AMGEN-US169280

PATIENT
  Age: 24 Year
  Sex: Female

DRUGS (2)
  1. KINERET [Suspect]
     Indication: DRUG USE FOR UNKNOWN INDICATION
     Dates: start: 20060101
  2. CORTICOSTEROID NOS [Concomitant]
     Dates: start: 20060101

REACTIONS (2)
  - PNEUMOCOCCAL SEPSIS [None]
  - PYREXIA [None]
